FAERS Safety Report 5228366-3 (Version None)
Quarter: 2007Q1

REPORT INFORMATION
  Report Type: 
  Country: None (occurrence: None)
  Receive Date: 20070131
  Receipt Date: 20070131
  Transmission Date: 20070707
  Serious: Yes (Disabling, Other)
  Sender: FDA-Public Use
  Company Number: None

PATIENT
  Sex: Female
  Weight: 65.318 kg

DRUGS (2)
  1. CIPROFLOXACIN HCL [Suspect]
     Indication: CYSTITIS
     Dosage: 1 TAB Q12HR FOR 10 DAYS
     Dates: start: 20050802
  2. LEVAQUIN [Suspect]
     Dosage: 1 TAB EVERY DAY FOR 7 DAYS
     Dates: start: 20050808

REACTIONS (4)
  - ILL-DEFINED DISORDER [None]
  - MENISCUS LESION [None]
  - TENDON DISORDER [None]
  - TENDON RUPTURE [None]
